FAERS Safety Report 5850178-8 (Version None)
Quarter: 2008Q3

REPORT INFORMATION
  Report Type: 
  Country: None (occurrence: None)
  Receive Date: 20080819
  Receipt Date: 20080805
  Transmission Date: 20090109
  Serious: No
  Sender: FDA-Public Use
  Company Number: US-BOEHRINGER INGELHEIM GMBH, GERMANY-2008-BP-12310BP

PATIENT
  Age: 53 Year
  Sex: Male

DRUGS (4)
  1. MIRAPEX [Suspect]
     Dates: start: 20080601
  2. ALBUTEROL [Concomitant]
  3. XANAX [Concomitant]
  4. HYDROCODONE BITARTRATE [Concomitant]

REACTIONS (1)
  - URINE BARBITURATES [None]
